FAERS Safety Report 8986648 (Version 1)
Quarter: 2012Q4

REPORT INFORMATION
  Report Type: 
  Country: JP (occurrence: JP)
  Receive Date: 20121226
  Receipt Date: 20121226
  Transmission Date: 20130627
  Serious: Yes (Other)
  Sender: FDA-Public Use
  Company Number: JP-MYLANLABS-2012S1025885

PATIENT
  Age: 66 Year
  Sex: Female

DRUGS (9)
  1. CYCLOPHOSPHAMIDE [Suspect]
     Indication: CHRONIC LYMPHOCYTIC LEUKAEMIA
     Route: 065
  2. CYCLOPHOSPHAMIDE [Suspect]
     Indication: B-CELL LYMPHOMA
     Route: 065
  3. EPIRUBICIN [Suspect]
     Indication: B-CELL LYMPHOMA
     Route: 065
  4. VINCRISTINE [Suspect]
     Indication: B-CELL LYMPHOMA
     Route: 065
  5. MITOXANTRONE [Suspect]
     Indication: B-CELL LYMPHOMA
     Route: 065
  6. METHOTREXATE [Suspect]
     Indication: B-CELL LYMPHOMA
     Route: 065
  7. PREDNISOLONE [Suspect]
     Indication: B-CELL LYMPHOMA
     Route: 065
  8. ETOPOSIDE [Suspect]
     Indication: B-CELL LYMPHOMA
     Route: 065
  9. CISPLATIN [Suspect]
     Indication: B-CELL LYMPHOMA
     Route: 065

REACTIONS (1)
  - Sweat gland tumour [Unknown]
